FAERS Safety Report 5786740-0 (Version None)
Quarter: 2008Q2

REPORT INFORMATION
  Report Type: 
  Country: None (occurrence: None)
  Receive Date: 20080619
  Receipt Date: 20080401
  Transmission Date: 20081010
  Serious: No
  Sender: FDA-Public Use
  Company Number: US-1165726

PATIENT
  Age: 52 Year
  Sex: Female

DRUGS (8)
  1. PATADAY SOLUTION [Suspect]
     Indication: HYPERSENSITIVITY
     Dosage: (1X/DAY (OPHTHALMIC)
     Route: 047
     Dates: start: 20080315
  2. ALPHAGAN [Concomitant]
  3. TIAZAC [Concomitant]
  4. PREVACID [Concomitant]
  5. GLUCOPHAGE [Concomitant]
  6. GLUCOTROL [Concomitant]
  7. ASPIRIN [Concomitant]
  8. ZOCOR [Concomitant]

REACTIONS (1)
  - BACK PAIN [None]
